FAERS Safety Report 8735506 (Version 2)
Quarter: 2012Q4

REPORT INFORMATION
  Report Type: 
  Country: US (occurrence: US)
  Receive Date: 20120822
  Receipt Date: 20121008
  Transmission Date: 20130627
  Serious: Yes (Other)
  Sender: FDA-Public Use
  Company Number: PHEH2012US016074

PATIENT
  Sex: Male

DRUGS (9)
  1. EXELON PATCH [Suspect]
     Dosage: 9.5 mg, QD
     Route: 062
  2. SEROQUEL [Concomitant]
     Dosage: 150 mg, UNK
  3. ZANTAC [Concomitant]
     Dosage: 10 mg, QD
  4. MECLIZINE [Concomitant]
     Dosage: 4 DF (125 mg), QD
  5. AMLODIPINE [Concomitant]
     Dosage: 10 mg, QD
  6. PRAVASTATIN [Concomitant]
     Dosage: 10 mg, QD
  7. OXYCODONE [Concomitant]
     Dosage: 4 DF, QD
  8. NAPROXEN [Concomitant]
     Dosage: 3 DF (500 mg), QD
  9. CITALOPRAM [Concomitant]
     Dosage: 20 mg, QD

REACTIONS (1)
  - Withdrawal syndrome [Unknown]
